FAERS Safety Report 26069816 (Version 1)
Quarter: 2025Q4

REPORT INFORMATION
  Report Type: Spontaneous
  Country: US (occurrence: US)
  Receive Date: 20251120
  Receipt Date: 20251120
  Transmission Date: 20260118
  Serious: No
  Sender: CATALYST PHARMA
  Company Number: US-CATALYST PHARMACEUTICALS-US-CATA-25-01113

PATIENT
  Sex: Male
  Weight: 26.893 kg

DRUGS (17)
  1. AGAMREE [Suspect]
     Active Substance: VAMOROLONE
     Indication: Duchenne muscular dystrophy
     Dosage: 4.0 ML PER DAY
     Route: 048
     Dates: start: 20250718
  2. CHILDREN^S PEPTO [Concomitant]
     Indication: Abdominal discomfort
     Dosage: 400 MG AS NEEDED
     Route: 065
  3. CLARITIN [Concomitant]
     Active Substance: LORATADINE
     Indication: Seasonal allergy
     Dosage: 10 ML AS NEEDED
     Route: 048
  4. ENALAPRIL [Concomitant]
     Active Substance: ENALAPRIL
     Indication: Cardiovascular event prophylaxis
     Dosage: 1.5 ML TWICE A DAY
     Route: 065
  5. FLINTSTONES CHEWABLE VITAMINS [Concomitant]
     Indication: Hypovitaminosis
     Dosage: 2 DAILY
     Route: 065
  6. FLONASE [Concomitant]
     Active Substance: FLUTICASONE PROPIONATE
     Indication: Seasonal allergy
     Dosage: NASAL SPRAY AS NEEDED
     Route: 045
  7. HYLAND^S COLD^N COUGH [Concomitant]
     Indication: Nasopharyngitis
     Dosage: 1 DOSE AS NEEDED
     Route: 065
  8. HYLAND^S COLD^N COUGH [Concomitant]
     Indication: Nasal congestion
  9. HYLAND^S KIDS ALL IN ONE COUGH [Concomitant]
     Indication: Nasopharyngitis
     Dosage: 10 ML AS NEEDED
     Route: 065
  10. IMODIUM [Concomitant]
     Active Substance: LOPERAMIDE HYDROCHLORIDE
     Indication: Diarrhoea
     Dosage: AS NEEDED
     Route: 048
  11. SALINE [Concomitant]
     Active Substance: SODIUM CHLORIDE
     Indication: Nasal congestion
     Dosage: 2-6 DROPS AS NEEDED
     Route: 045
  12. MUCINEX COUGH CHILDRENS [Concomitant]
     Indication: Nasal congestion
     Dosage: AS NEEDED
     Route: 065
  13. MUCINEX COUGH CHILDRENS [Concomitant]
     Indication: Pulmonary congestion
  14. PREDNISONE [Concomitant]
     Active Substance: PREDNISONE
     Indication: Illness
     Dosage: AS NEEDED
     Route: 048
  15. CHILDRENS TYLENOL [Concomitant]
     Active Substance: ACETAMINOPHEN
     Indication: Pain
     Dosage: AS NEEDED
     Route: 065
  16. CHILDRENS TYLENOL [Concomitant]
     Active Substance: ACETAMINOPHEN
     Indication: Pyrexia
  17. CHILDRENS ZYRTEC [Concomitant]
     Active Substance: CETIRIZINE HYDROCHLORIDE
     Indication: Seasonal allergy
     Dosage: DAILY
     Route: 065

REACTIONS (12)
  - Abdominal pain upper [Not Recovered/Not Resolved]
  - Crying [Not Recovered/Not Resolved]
  - Asthenia [Recovering/Resolving]
  - Gait disturbance [Not Recovered/Not Resolved]
  - Dysstasia [Not Recovered/Not Resolved]
  - Fall [Recovering/Resolving]
  - Fatigue [Recovering/Resolving]
  - Increased appetite [Not Recovered/Not Resolved]
  - Emotional disorder [Not Recovered/Not Resolved]
  - Weight increased [Not Recovered/Not Resolved]
  - Swelling face [Not Recovered/Not Resolved]
  - Treatment noncompliance [Unknown]

NARRATIVE: CASE EVENT DATE: 20250101
